FAERS Safety Report 7904074-2 (Version None)
Quarter: 2011Q4

REPORT INFORMATION
  Report Type: 
  Country: None (occurrence: None)
  Receive Date: 20111109
  Receipt Date: 20111107
  Transmission Date: 20120403
  Serious: Yes (Death, Hospitalization)
  Sender: FDA-Public Use
  Company Number: TW-MERCK-1111USA00710

PATIENT
  Age: 83 Year
  Sex: Female
  Weight: 37 kg

DRUGS (1)
  1. FOSAMAX PLUS D [Suspect]
     Indication: OSTEOPOROSIS
     Route: 048
     Dates: start: 20091005, end: 20110803

REACTIONS (1)
  - CEREBROVASCULAR ACCIDENT [None]
